FAERS Safety Report 4633374-7 (Version None)
Quarter: 2005Q2

REPORT INFORMATION
  Report Type: 
  Country: None (occurrence: None)
  Receive Date: 20050412
  Receipt Date: 20050331
  Transmission Date: 20051028
  Serious: Yes (Other)
  Sender: FDA-Public Use
  Company Number: HQWYE170017MAR05

PATIENT
  Age: 72 Year

DRUGS (6)
  1. PANTOPRAZOLE SODIUM [Suspect]
     Indication: HELICOBACTER INFECTION
     Dosage: 40 MG 2 X PER 1 DAY
     Route: 048
     Dates: start: 20050126, end: 20050128
  2. AMOXICILLIN [Suspect]
     Indication: HELICOBACTER INFECTION
     Dosage: 1000 MG 2X PER 1 DAY
     Route: 048
     Dates: start: 20050126, end: 20050128
  3. CLARITHROMYCIN [Suspect]
     Indication: HELICOBACTER INFECTION
     Dosage: 500 MG 2X PER 1 DAY
     Route: 048
     Dates: start: 20050126, end: 20050128
  4. HYDROCHLOROTHIAZIDE [Concomitant]
  5. VALSARTAN [Concomitant]
  6. NOVONORM (REPAGLINIDE) [Concomitant]

REACTIONS (5)
  - CEREBRAL DISORDER [None]
  - DIZZINESS [None]
  - GAIT DISTURBANCE [None]
  - SCAR [None]
  - TRANSIENT ISCHAEMIC ATTACK [None]
